FAERS Safety Report 12940287 (Version 1)
Quarter: 2016Q4

REPORT INFORMATION
  Report Type: Spontaneous
  Country: US (occurrence: US)
  Receive Date: 20161115
  Receipt Date: 20161115
  Transmission Date: 20170207
  Serious: Yes (Other)
  Sender: FDA-Public Use
  Company Number: None

PATIENT
  Age: 44 Year
  Sex: Female
  Weight: 193.5 kg

DRUGS (6)
  1. LEXAPRO [Concomitant]
     Active Substance: ESCITALOPRAM OXALATE
  2. APRI [Concomitant]
     Active Substance: DESOGESTREL\ETHINYL ESTRADIOL
  3. FISH OIL [Concomitant]
     Active Substance: FISH OIL
  4. RED YEAST RICE EXTRACT [Concomitant]
  5. LOSARTAN. [Suspect]
     Active Substance: LOSARTAN
     Indication: HYPERTENSION
     Route: 048
     Dates: start: 20150916, end: 20161020
  6. MVI [Concomitant]
     Active Substance: VITAMINS

REACTIONS (2)
  - Type III immune complex mediated reaction [None]
  - Seasonal allergy [None]

NARRATIVE: CASE EVENT DATE: 20151223
